FAERS Safety Report 25586407 (Version 1)
Quarter: 2025Q3

REPORT INFORMATION
  Report Type: Spontaneous
  Country: US (occurrence: None)
  Receive Date: 20250719
  Receipt Date: 20250719
  Transmission Date: 20251021
  Serious: Yes (Other)
  Sender: FDA-CTU
  Company Number: None

PATIENT
  Age: 52 Year
  Sex: Female
  Weight: 81.65 kg

DRUGS (10)
  1. IUD NOS [Suspect]
     Active Substance: COPPER OR LEVONORGESTREL
  2. BUPROPION HYDROCHLORIDE XL [Concomitant]
     Active Substance: BUPROPION HYDROCHLORIDE
  3. ROSUVASTATIN [Concomitant]
     Active Substance: ROSUVASTATIN
  4. TOPIRAMATE [Concomitant]
     Active Substance: TOPIRAMATE
  5. VENLAFAXINE HCL [Concomitant]
     Active Substance: VENLAFAXINE HYDROCHLORIDE
  6. Metoprolol Succ ER 50 mg [Concomitant]
  7. ZYRTEC [Concomitant]
     Active Substance: CETIRIZINE HYDROCHLORIDE
  8. AZO complete feminine balance [Concomitant]
  9. AZO URINARY TRACT HEALTH [Concomitant]
     Active Substance: PHENAZOPYRIDINE HYDROCHLORIDE
  10. VITAMIN D [Concomitant]
     Active Substance: VITAMIN D NOS

REACTIONS (7)
  - Affect lability [None]
  - Crying [None]
  - Depression [None]
  - Feelings of worthlessness [None]
  - Irritability [None]
  - Asthenia [None]
  - Decreased interest [None]

NARRATIVE: CASE EVENT DATE: 20250707
